FAERS Safety Report 12212738 (Version 1)
Quarter: 2016Q1

REPORT INFORMATION
  Report Type: Spontaneous
  Country: US (occurrence: US)
  Receive Date: 20160328
  Receipt Date: 20160328
  Transmission Date: 20160526
  Serious: No
  Sender: FDA-Public Use
  Company Number: US-STRIDES ARCOLAB LIMITED-2016SP000494

PATIENT

DRUGS (3)
  1. CINACALCET [Concomitant]
     Active Substance: CINACALCET
     Indication: PSEUDOHYPOPARATHYROIDISM
     Dosage: UNK
  2. CALCITRIOL. [Suspect]
     Active Substance: CALCITRIOL
     Indication: PSEUDOHYPOPARATHYROIDISM
     Dosage: UNK
  3. CALCIUM [Suspect]
     Active Substance: CALCIUM
     Indication: PSEUDOHYPOPARATHYROIDISM
     Dosage: UNK

REACTIONS (1)
  - Drug ineffective [Unknown]
